FAERS Safety Report 14614684 (Version 1)
Quarter: 2018Q1

REPORT INFORMATION
  Report Type: Spontaneous
  Country: TW (occurrence: TW)
  Receive Date: 20180308
  Receipt Date: 20180308
  Transmission Date: 20180509
  Serious: Yes (Other)
  Sender: FDA-Public Use
  Company Number: TW-SHIRE-TW201808659

PATIENT

DRUGS (1)
  1. ELAPRASE [Suspect]
     Active Substance: IDURSULFASE
     Indication: MUCOPOLYSACCHARIDOSIS II
     Route: 041

REACTIONS (4)
  - Sputum retention [Unknown]
  - Anoxia [Unknown]
  - Loss of consciousness [Unknown]
  - Affect lability [Unknown]

NARRATIVE: CASE EVENT DATE: 20180214
